FAERS Safety Report 11204487 (Version 2)
Quarter: 2015Q2

REPORT INFORMATION
  Report Type: Spontaneous
  Country: BR (occurrence: BR)
  Receive Date: 20150621
  Receipt Date: 20150628
  Transmission Date: 20150821
  Serious: Yes (Hospitalization, Other)
  Sender: FDA-Public Use
  Company Number: BR-AMGEN-BRASP2015059816

PATIENT
  Age: 52 Year
  Sex: Female
  Weight: 68 kg

DRUGS (2)
  1. ENBREL [Suspect]
     Active Substance: ETANERCEPT
     Indication: PSORIASIS
     Dosage: UNK
     Route: 065
     Dates: start: 20131212
  2. INSULIN [Concomitant]
     Active Substance: INSULIN NOS
     Indication: DIABETES MELLITUS
     Dosage: UNK
     Dates: start: 201505

REACTIONS (7)
  - Skin exfoliation [Unknown]
  - Skin atrophy [Unknown]
  - Blood glucose increased [Unknown]
  - Dermatitis [Unknown]
  - Skin haemorrhage [Unknown]
  - Wound [Unknown]
  - Hypertension [Unknown]

NARRATIVE: CASE EVENT DATE: 201504
